FAERS Safety Report 4425284-5 (Version None)
Quarter: 2004Q3

REPORT INFORMATION
  Report Type: 
  Country: None (occurrence: None)
  Receive Date: 20040813
  Receipt Date: 20040804
  Transmission Date: 20050211
  Serious: Yes (Death, Life-Threatening, Hospitalization)
  Sender: FDA-Public Use
  Company Number: GB-JNJFOC-20040800702

PATIENT
  Sex: Male

DRUGS (5)
  1. REMICADE [Suspect]
     Indication: RHEUMATOID ARTHRITIS
     Route: 042
  2. METHOTREXATE [Concomitant]
  3. NAPROXEN [Concomitant]
  4. BENDROFLUAZIDE [Concomitant]
  5. DIORAN [Concomitant]

REACTIONS (3)
  - BACK PAIN [None]
  - C-REACTIVE PROTEIN INCREASED [None]
  - LUNG CANCER METASTATIC [None]
